FAERS Safety Report 22085196 (Version 1)
Quarter: 2023Q1

REPORT INFORMATION
  Report Type: Spontaneous
  Country: FR (occurrence: FR)
  Receive Date: 20230310
  Receipt Date: 20230310
  Transmission Date: 20230417
  Serious: Yes (Hospitalization)
  Sender: FDA-Public Use
  Company Number: None

PATIENT
  Sex: Female
  Weight: 64 kg

DRUGS (17)
  1. AVIBACTAM SODIUM\CEFTAZIDIME [Suspect]
     Active Substance: AVIBACTAM SODIUM\CEFTAZIDIME
     Indication: Pneumonia
     Dosage: 0.75 G, QD
     Route: 042
     Dates: start: 20230206, end: 20230214
  2. DAPTOMYCIN [Suspect]
     Active Substance: DAPTOMYCIN
     Indication: Pneumonia
     Dosage: 10 MG/KG, ALTERNATE DAY ~(007 MG/KG)
     Route: 042
     Dates: start: 20230206, end: 20230214
  3. PHENOBARBITAL [Suspect]
     Active Substance: PHENOBARBITAL
     Indication: Status epilepticus
     Dosage: 400 MG, 1X/DAY
     Route: 048
     Dates: start: 20221227
  4. NIMODIPINE [Concomitant]
     Active Substance: NIMODIPINE
     Indication: Product used for unknown indication
     Route: 042
     Dates: start: 20230208, end: 20230213
  5. SUFENTANIL CITRATE [Concomitant]
     Active Substance: SUFENTANIL CITRATE
     Indication: Analgesic intervention supportive therapy
     Route: 042
     Dates: start: 20230207, end: 20230214
  6. PERAMPANEL [Concomitant]
     Active Substance: PERAMPANEL
     Indication: Status epilepticus
     Dosage: 12 MG, 1X/DAY
     Dates: start: 20230131
  7. PERAMPANEL [Concomitant]
     Active Substance: PERAMPANEL
     Dosage: 6 MG, 1X/DAY
     Dates: start: 20230110, end: 20230130
  8. CARBAMAZEPINE [Concomitant]
     Active Substance: CARBAMAZEPINE
     Indication: Status epilepticus
     Dosage: 1200 MG, QD
     Route: 048
     Dates: start: 20230131
  9. CALCIPARINE [Concomitant]
     Active Substance: HEPARIN CALCIUM
     Indication: Subclavian vein thrombosis
     Dosage: 250 IU/KG FREQ:12 H
     Route: 058
     Dates: start: 20230217
  10. CALCIPARINE [Concomitant]
     Active Substance: HEPARIN CALCIUM
     Dosage: 250 IU/KG FREQ:12 H
     Route: 058
     Dates: start: 20230204, end: 20230213
  11. PROPOFOL [Concomitant]
     Active Substance: PROPOFOL
     Indication: Status epilepticus
     Dosage: 200 MG FREQ:1 H
     Route: 042
     Dates: start: 20230124, end: 20230213
  12. PROPOFOL [Concomitant]
     Active Substance: PROPOFOL
     Dosage: 100 MG FREQ:1 H
     Route: 042
     Dates: start: 20230123, end: 20230123
  13. SYNACTHENE [TETRACOSACTIDE] [Concomitant]
     Indication: Product used for unknown indication
     Dosage: 0.25 MG, Q6HR
     Route: 042
     Dates: start: 20230208, end: 20230213
  14. MIDAZOLAM [Concomitant]
     Active Substance: MIDAZOLAM
     Indication: Status epilepticus
     Dosage: 20 MG FREQ:1 H
     Route: 042
     Dates: start: 20221231, end: 20230213
  15. TOPIRAMATE [Concomitant]
     Active Substance: TOPIRAMATE
     Indication: Status epilepticus
     Dosage: 400 MG FREQ 12H
     Dates: start: 20230118
  16. FUROSEMIDE [Concomitant]
     Active Substance: FUROSEMIDE
     Indication: Oliguria
     Route: 042
     Dates: start: 20230217, end: 20230217
  17. FUROSEMIDE [Concomitant]
     Active Substance: FUROSEMIDE
     Dosage: UNK
     Route: 042
     Dates: start: 20230208, end: 20230214

REACTIONS (1)
  - Mixed liver injury [Recovering/Resolving]

NARRATIVE: CASE EVENT DATE: 20230214
